FAERS Safety Report 4661251-4 (Version None)
Quarter: 2005Q2

REPORT INFORMATION
  Report Type: 
  Country: None (occurrence: None)
  Receive Date: 20050429
  Receipt Date: 20040524
  Transmission Date: 20051028
  Serious: Yes (Other)
  Sender: FDA-Public Use
  Company Number: HQWYE102125MAY04

PATIENT
  Sex: Male

DRUGS (1)
  1. PROTONIX [Suspect]
     Indication: GASTROINTESTINAL HAEMORRHAGE
     Dosage: 80 MG BOLUS THEN UNKNOWN DOSE, CONTINUOUS INFUSION, INTRAVENOUS
     Route: 042
     Dates: start: 20040521, end: 20040525

REACTIONS (1)
  - THROMBOCYTOPENIA [None]
